FAERS Safety Report 14234636 (Version 1)
Quarter: 2017Q4

REPORT INFORMATION
  Report Type: Spontaneous
  Country: US (occurrence: US)
  Receive Date: 20171129
  Receipt Date: 20171129
  Transmission Date: 20180321
  Serious: No
  Sender: FDA-Public Use
  Company Number: US-JNJFOC-20171026377

PATIENT
  Age: 77 Year
  Sex: Male

DRUGS (2)
  1. TYLENOL EXTRA STRENGTH [Suspect]
     Active Substance: ACETAMINOPHEN
     Indication: PAIN
     Dosage: 4 TO 5 TABLETS CRUSHED TO A FINE POWDER, AND SPREAD IT OVER TWO LIDOCAINE PATCHES
     Route: 061
  2. LIDOCAINE. [Concomitant]
     Active Substance: LIDOCAINE
     Indication: PAIN
     Route: 061

REACTIONS (2)
  - Wrong technique in product usage process [Unknown]
  - Incorrect route of drug administration [Unknown]
